FAERS Safety Report 22019899 (Version 1)
Quarter: 2023Q1

REPORT INFORMATION
  Report Type: Spontaneous
  Country: US (occurrence: None)
  Receive Date: 20230222
  Receipt Date: 20230222
  Transmission Date: 20230418
  Serious: No
  Sender: FDA-Public Use
  Company Number: 2023A037630

PATIENT
  Sex: Female
  Weight: 66.7 kg

DRUGS (2)
  1. BUDESONIDE\FORMOTEROL FUMARATE [Suspect]
     Active Substance: BUDESONIDE\FORMOTEROL FUMARATE
     Indication: Upper respiratory tract infection
     Dosage: 80/4.5MCG80.0UG UNKNOWN
     Route: 055
     Dates: start: 20220926, end: 20221115
  2. BUDESONIDE\FORMOTEROL FUMARATE [Suspect]
     Active Substance: BUDESONIDE\FORMOTEROL FUMARATE
     Indication: Cough
     Route: 055
     Dates: start: 20230114

REACTIONS (7)
  - Cough [Unknown]
  - Heart rate irregular [Unknown]
  - Skin reaction [Unknown]
  - COVID-19 [Unknown]
  - Paraesthesia [Unknown]
  - Erythema [Unknown]
  - Off label use [Unknown]
